FAERS Safety Report 14391840 (Version 4)
Quarter: 2018Q1

REPORT INFORMATION
  Report Type: Spontaneous
  Country: JP (occurrence: JP)
  Receive Date: 20180116
  Receipt Date: 20180220
  Transmission Date: 20180509
  Serious: Yes (Death)
  Sender: FDA-Public Use
  Company Number: JP-JNJFOC-20180115079

PATIENT
  Age: 35 Year
  Sex: Male
  Weight: 55 kg

DRUGS (11)
  1. TANDOSPIRONE CITRATE [Concomitant]
     Active Substance: TANDOSPIRONE CITRATE
     Indication: ANXIETY
     Route: 048
     Dates: start: 20171209, end: 20180103
  2. XEPLION [Suspect]
     Active Substance: PALIPERIDONE PALMITATE
     Indication: SCHIZOPHRENIA
     Route: 030
     Dates: start: 20171109
  3. SYCREST [Concomitant]
     Active Substance: ASENAPINE MALEATE
     Indication: SCHIZOPHRENIA
     Route: 048
     Dates: start: 20171225, end: 20180103
  4. RIVOTRIL [Concomitant]
     Active Substance: CLONAZEPAM
     Indication: AKATHISIA
     Route: 048
     Dates: start: 20171109, end: 20180103
  5. ESTAZOLAM. [Concomitant]
     Active Substance: ESTAZOLAM
     Indication: INSOMNIA
     Route: 048
     Dates: start: 20171209, end: 20180103
  6. XEPLION [Suspect]
     Active Substance: PALIPERIDONE PALMITATE
     Indication: SCHIZOPHRENIA
     Route: 030
     Dates: start: 20171102, end: 20171102
  7. ABILIFY [Suspect]
     Active Substance: ARIPIPRAZOLE
     Indication: SCHIZOPHRENIA
     Route: 048
     Dates: start: 20171209, end: 20180103
  8. REMERON [Concomitant]
     Active Substance: MIRTAZAPINE
     Indication: DEPRESSION
     Route: 048
     Dates: start: 20171216, end: 20180103
  9. ARTANE [Concomitant]
     Active Substance: TRIHEXYPHENIDYL HYDROCHLORIDE
     Indication: AKATHISIA
     Route: 048
     Dates: start: 20171228, end: 20180103
  10. QUAZEPAM. [Concomitant]
     Active Substance: QUAZEPAM
     Indication: INSOMNIA
     Route: 048
     Dates: start: 20171209, end: 20180103
  11. RIVOTRIL [Concomitant]
     Active Substance: CLONAZEPAM
     Indication: ANXIETY
     Route: 048
     Dates: start: 20171109, end: 20180103

REACTIONS (1)
  - Asphyxia [Fatal]

NARRATIVE: CASE EVENT DATE: 20180104
